FAERS Safety Report 16913339 (Version 1)
Quarter: 2019Q4

REPORT INFORMATION
  Report Type: Spontaneous
  Country: US (occurrence: US)
  Receive Date: 20191011
  Receipt Date: 20191011
  Transmission Date: 20200122
  Serious: Yes (Hospitalization)
  Sender: FDA-Public Use
  Company Number: None

PATIENT
  Age: 42 Year
  Sex: Female

DRUGS (8)
  1. OCTREOTIDE. [Suspect]
     Active Substance: OCTREOTIDE
     Indication: PRODUCT USED FOR UNKNOWN INDICATION
     Route: 058
  2. FENTANYL. [Concomitant]
     Active Substance: FENTANYL
  3. ONDANSETRON [Concomitant]
     Active Substance: ONDANSETRON
  4. ENOXAPARIN [Concomitant]
     Active Substance: ENOXAPARIN
  5. LORAZEPAM. [Concomitant]
     Active Substance: LORAZEPAM
  6. LMX 4 [Concomitant]
  7. MORPHINE [Concomitant]
     Active Substance: MORPHINE
  8. VIT. D [Concomitant]

REACTIONS (1)
  - Hospitalisation [None]

NARRATIVE: CASE EVENT DATE: 20191011
